FAERS Safety Report 5763162-X (Version None)
Quarter: 2008Q2

REPORT INFORMATION
  Report Type: 
  Country: None (occurrence: None)
  Receive Date: 20080609
  Receipt Date: 20080605
  Transmission Date: 20081010
  Serious: Yes (Death, Other)
  Sender: FDA-Public Use
  Company Number: US-ASTRAZENECA-2006UW21419

PATIENT
  Sex: Female
  Weight: 89.1 kg

DRUGS (2)
  1. SEROQUEL [Suspect]
     Indication: ANXIETY
     Dosage: 100 MG TO 300 MG
     Route: 048
     Dates: start: 20020101, end: 20050728
  2. SEROQUEL [Suspect]
     Indication: DEPRESSION
     Dosage: 100 MG TO 300 MG
     Route: 048
     Dates: start: 20020101, end: 20050728

REACTIONS (4)
  - DEATH [None]
  - DIABETES MELLITUS [None]
  - DIABETIC COMA [None]
  - DIABETIC KETOACIDOSIS [None]
